FAERS Safety Report 5885704-6 (Version None)
Quarter: 2008Q3

REPORT INFORMATION
  Report Type: 
  Country: None (occurrence: None)
  Receive Date: 20080912
  Receipt Date: 20080903
  Transmission Date: 20090109
  Serious: Yes (Death)
  Sender: FDA-Public Use
  Company Number: 2008-02160

PATIENT
  Age: 77 Year
  Sex: Female
  Weight: 60 kg

DRUGS (5)
  1. VELCADE [Suspect]
     Indication: MULTIPLE MYELOMA
     Dosage: 2 MG, INTRAVENOUS
     Route: 042
     Dates: start: 20080107, end: 20080321
  2. DEXAMETHASONE [Concomitant]
  3. ZOMETA [Concomitant]
  4. CO-DANTHRAMER (DANTRON, POLOXAMER) [Concomitant]
  5. VELCADE [Suspect]

REACTIONS (1)
  - DRUG INEFFECTIVE [None]
